FAERS Safety Report 9726132 (Version 3)
Quarter: 2013Q4

REPORT INFORMATION
  Report Type: Spontaneous
  Country: JP (occurrence: JP)
  Receive Date: 20131203
  Receipt Date: 20131230
  Transmission Date: 20140711
  Serious: Yes (Hospitalization)
  Sender: FDA-Public Use
  Company Number: JP-B.I. PHARMACEUTICALS,INC./RIDGEFIELD-2013-BI-39581NB

PATIENT
  Age: 62 Year
  Sex: Female

DRUGS (7)
  1. ATORVASTATIN CALCIUM HYDRATE [Suspect]
     Indication: HYPERLIPIDAEMIA
     Dosage: 10 MG
     Route: 048
  2. GASTER D [Suspect]
     Dosage: 10 MG
     Route: 048
     Dates: start: 2007
  3. WARFARIN/ WARFARIN POTASSIUM [Concomitant]
     Route: 048
     Dates: start: 2007
  4. BIOFERMIN / LACTOMIN [Concomitant]
     Route: 048
     Dates: start: 2007
  5. NEUQUINON / UBIDECARENONE [Concomitant]
     Route: 065
     Dates: start: 2007
  6. MICARDIS [Suspect]
     Indication: HYPERTENSION
     Dosage: 40 MG
     Route: 048
     Dates: start: 2008
  7. LIPITOR [Suspect]
     Indication: HYPERLIPIDAEMIA
     Dosage: 10 MG
     Route: 048
     Dates: start: 2007, end: 201306

REACTIONS (2)
  - Cerebrovascular accident [Recovered/Resolved]
  - Alopecia [Unknown]
